FAERS Safety Report 17909173 (Version 2)
Quarter: 2020Q3

REPORT INFORMATION
  Report Type: Spontaneous
  Country: US (occurrence: US)
  Receive Date: 20200617
  Receipt Date: 20200714
  Transmission Date: 20201103
  Serious: No
  Sender: FDA-Public Use
  Company Number: US-PFIZER INC-2020235161

PATIENT
  Age: 45 Year
  Sex: Female
  Weight: 127 kg

DRUGS (1)
  1. IBRANCE [Suspect]
     Active Substance: PALBOCICLIB
     Indication: BREAST CANCER METASTATIC
     Dosage: 125 MG

REACTIONS (4)
  - Dry mouth [Unknown]
  - Diarrhoea [Unknown]
  - Dysuria [Unknown]
  - Rash [Unknown]
